FAERS Safety Report 14066993 (Version 1)
Quarter: 2017Q4

REPORT INFORMATION
  Report Type: Spontaneous
  Country: RO (occurrence: RO)
  Receive Date: 20171009
  Receipt Date: 20171009
  Transmission Date: 20180321
  Serious: Yes (Life-Threatening)
  Sender: FDA-Public Use
  Company Number: RO-SA-2017SA189570

PATIENT
  Age: 71 Year
  Sex: Male

DRUGS (7)
  1. DIUREX [Concomitant]
     Active Substance: AMILORIDE HYDROCHLORIDE\HYDROCHLOROTHIAZIDE
     Indication: CARDIAC FAILURE
     Route: 048
     Dates: start: 20170915
  2. CLEXANE [Suspect]
     Active Substance: ENOXAPARIN SODIUM
     Indication: ATRIAL FIBRILLATION
     Route: 058
     Dates: start: 20170915, end: 20170917
  3. NITROPECTOR [Concomitant]
     Indication: CARDIAC FAILURE
     Dosage: 3 TABLETS/DAY
     Route: 048
     Dates: start: 20170915
  4. METOCLOPRAMIDE. [Concomitant]
     Active Substance: METOCLOPRAMIDE
     Indication: GASTRITIS
     Route: 048
     Dates: start: 20170915
  5. ALGOCALMIN [Concomitant]
     Active Substance: METAMIZOLE SODIUM
     Dosage: 2 AMPOULES/DAY
     Route: 030
     Dates: start: 20170915
  6. GLUCOSE [Concomitant]
     Active Substance: DEXTROSE
     Dosage: SOLUTION
     Route: 065
  7. DIGOXIN. [Concomitant]
     Active Substance: DIGOXIN
     Indication: ATRIAL FIBRILLATION
     Route: 048
     Dates: start: 20170915

REACTIONS (7)
  - Cyanosis [Recovered/Resolved]
  - Respiratory failure [Recovered/Resolved]
  - Chills [Recovered/Resolved]
  - Oxygen saturation decreased [Recovered/Resolved]
  - Blood pressure diastolic increased [Recovered/Resolved]
  - Blood pressure systolic increased [Recovered/Resolved]
  - Pyrexia [Recovered/Resolved]

NARRATIVE: CASE EVENT DATE: 20170917
